FAERS Safety Report 20130295 (Version 1)
Quarter: 2021Q4

REPORT INFORMATION
  Report Type: Spontaneous
  Country: US (occurrence: None)
  Receive Date: 20211130
  Receipt Date: 20211130
  Transmission Date: 20220303
  Serious: Yes (Other)
  Sender: FDA-Public Use
  Company Number: None

PATIENT
  Age: 55 Year
  Sex: Male
  Weight: 102.51 kg

DRUGS (2)
  1. CASIRIVIMAB [Suspect]
     Active Substance: CASIRIVIMAB
     Indication: Product used for unknown indication
     Dosage: FREQUENCY : ONCE;?
     Route: 042
     Dates: start: 20211124, end: 20211124
  2. IMDEVIMAB [Suspect]
     Active Substance: IMDEVIMAB
     Indication: Product used for unknown indication
     Dosage: ONCE
     Route: 042
     Dates: start: 20211124, end: 20211124

REACTIONS (9)
  - Pyrexia [None]
  - Thirst [None]
  - Dizziness [None]
  - Headache [None]
  - Flushing [None]
  - Anxiety [None]
  - Photosensitivity reaction [None]
  - Cardio-respiratory arrest [None]
  - Infusion related reaction [None]

NARRATIVE: CASE EVENT DATE: 20211124
